FAERS Safety Report 5722448-5 (Version None)
Quarter: 2008Q2

REPORT INFORMATION
  Report Type: 
  Country: None (occurrence: None)
  Receive Date: 20080429
  Receipt Date: 20070920
  Transmission Date: 20081010
  Serious: No
  Sender: FDA-Public Use
  Company Number: US-ASTRAZENECA-2007UW22128

PATIENT
  Age: 80 Year
  Sex: Male

DRUGS (9)
  1. NEXIUM [Suspect]
     Indication: GASTROOESOPHAGEAL REFLUX DISEASE
     Route: 048
  2. COUMADIN [Concomitant]
     Route: 048
  3. DIGOXIN [Concomitant]
     Route: 048
  4. CARBIDOPA [Concomitant]
     Route: 048
  5. FINASTERIDE [Concomitant]
     Route: 048
  6. SENNA [Concomitant]
     Route: 048
  7. LEVOTHYROXINE SODIUM [Concomitant]
     Route: 048
  8. SELEGILINE HCL [Concomitant]
     Route: 048
  9. FUROSEMIDE [Concomitant]
     Route: 048

REACTIONS (4)
  - CHILLS [None]
  - COUGH [None]
  - DYSPNOEA [None]
  - INSOMNIA [None]
